FAERS Safety Report 7279701-6 (Version None)
Quarter: 2011Q1

REPORT INFORMATION
  Report Type: 
  Country: None (occurrence: None)
  Receive Date: 20110203
  Receipt Date: 20110203
  Transmission Date: 20110831
  Serious: Yes (Other)
  Sender: FDA-Public Use
  Company Number: None

PATIENT
  Sex: Female

DRUGS (1)
  1. DORZOLAMIDE [Suspect]
     Indication: GLAUCOMA
     Dosage: ONE DROP ONCE A DAY OPHTHALMIC
     Route: 047
     Dates: start: 20110128, end: 20110128

REACTIONS (3)
  - DIZZINESS [None]
  - HYPERTENSION [None]
  - TREMOR [None]
